FAERS Safety Report 25456408 (Version 1)
Quarter: 2025Q2

REPORT INFORMATION
  Report Type: Spontaneous
  Country: DZ (occurrence: DZ)
  Receive Date: 20250619
  Receipt Date: 20250619
  Transmission Date: 20250716
  Serious: Yes (Death)
  Sender: BOEHRINGER INGELHEIM
  Company Number: DZ-BoehringerIngelheim-2025-BI-077789

PATIENT
  Age: 58 Year
  Sex: Male

DRUGS (1)
  1. OFEV [Suspect]
     Active Substance: NINTEDANIB
     Indication: Idiopathic pulmonary fibrosis
     Dates: start: 202412, end: 202502

REACTIONS (3)
  - Blood bilirubin increased [Fatal]
  - Jaundice [Fatal]
  - Cryptogenic cirrhosis [Fatal]
